FAERS Safety Report 6587110-8 (Version None)
Quarter: 2010Q1

REPORT INFORMATION
  Report Type: 
  Country: None (occurrence: None)
  Receive Date: 20100217
  Receipt Date: 20090505
  Transmission Date: 20100710
  Serious: No
  Sender: FDA-Public Use
  Company Number: US-ALLERGAN-0904941US

PATIENT
  Age: 54 Year
  Sex: Female
  Weight: 54.422 kg

DRUGS (7)
  1. BOTOX [Suspect]
     Indication: TORTICOLLIS
     Dosage: 100 UNITS, SINGLE
     Route: 030
     Dates: start: 20090225, end: 20090225
  2. BOTOX [Suspect]
     Indication: MUSCLE MASS
     Dosage: 100 UNITS, SINGLE
     Route: 030
     Dates: start: 20090424, end: 20090424
  3. BOTOX [Suspect]
     Indication: PAIN
  4. BOTOX [Suspect]
     Indication: MUSCLE SPASMS
  5. BOTOX [Suspect]
     Indication: BONE PAIN
  6. BOTOX [Suspect]
     Indication: MYOFASCIAL PAIN SYNDROME
  7. BIOFREEZE [Concomitant]

REACTIONS (7)
  - FATIGUE [None]
  - INFLAMMATION [None]
  - MUSCLE DISORDER [None]
  - NAUSEA [None]
  - NERVOUSNESS [None]
  - PAIN [None]
  - RASH PUSTULAR [None]
